FAERS Safety Report 19207602 (Version 1)
Quarter: 2021Q2

REPORT INFORMATION
  Report Type: Spontaneous
  Country: US (occurrence: US)
  Receive Date: 20210503
  Receipt Date: 20210503
  Transmission Date: 20210717
  Serious: No
  Sender: FDA-Public Use
  Company Number: US-RVL_PHARMACEUTICALS-USA-POI0573202100060

PATIENT
  Age: 76 Year
  Sex: Male

DRUGS (1)
  1. UPNEEQ [Suspect]
     Active Substance: OXYMETAZOLINE HYDROCHLORIDE
     Indication: PRODUCT USED FOR UNKNOWN INDICATION
     Dosage: IN 1 EYE
     Route: 047
     Dates: start: 202010

REACTIONS (2)
  - Vision blurred [Unknown]
  - Expired product administered [Unknown]

NARRATIVE: CASE EVENT DATE: 202010
